FAERS Safety Report 20029962 (Version 2)
Quarter: 2022Q2

REPORT INFORMATION
  Report Type: Report from Study
  Country: JP (occurrence: JP)
  Receive Date: 20211103
  Receipt Date: 20220516
  Transmission Date: 20220721
  Serious: Yes (Other)
  Sender: FDA-Public Use
  Company Number: JP-RECORDATI RARE DISEASE INC.-2021004480

PATIENT
  Age: 0 Year
  Sex: Female
  Weight: .926 kg

DRUGS (25)
  1. NEOPROFEN [Suspect]
     Active Substance: IBUPROFEN LYSINE
     Indication: Patent ductus arteriosus
     Dosage: 9.00 MILLIGRAM
     Route: 042
     Dates: start: 20201011, end: 20201011
  2. NEOPROFEN [Suspect]
     Active Substance: IBUPROFEN LYSINE
     Dosage: 4.5 MILLIGRAM
     Route: 042
     Dates: start: 20201012, end: 20201012
  3. SODIUM CHLORIDE [Concomitant]
     Active Substance: SODIUM CHLORIDE
     Indication: Catheter management
     Dosage: UNK
     Route: 042
     Dates: start: 20201008, end: 20201031
  4. HEPARIN SODIUM [Concomitant]
     Active Substance: HEPARIN SODIUM
     Indication: Prophylaxis
     Dosage: UNK
     Route: 042
     Dates: start: 20201002, end: 20201031
  5. DEXTROSE [Concomitant]
     Active Substance: DEXTROSE
     Indication: Parenteral nutrition
     Dosage: UNK
     Route: 042
     Dates: start: 20201003, end: 20201024
  6. PLEAMIN P [Concomitant]
     Indication: Parenteral nutrition
     Dosage: UNK
     Route: 042
     Dates: start: 20201003, end: 20201023
  7. POTASSIUM ASPARTATE [Concomitant]
     Active Substance: POTASSIUM ASPARTATE
     Indication: Hypokalaemia
     Dosage: UNK
     Route: 042
     Dates: start: 20201004, end: 20201022
  8. POTASSIUM ASPARTATE [Concomitant]
     Active Substance: POTASSIUM ASPARTATE
     Indication: Parenteral nutrition
  9. SODIUM PHOSPHATE [Concomitant]
     Active Substance: SODIUM PHOSPHATE
     Indication: Hyponatraemia
     Dosage: UNK
     Route: 042
     Dates: start: 20201005, end: 20201024
  10. SODIUM PHOSPHATE [Concomitant]
     Active Substance: SODIUM PHOSPHATE
     Indication: Parenteral nutrition
  11. WATER FOR INJECTION [Concomitant]
     Active Substance: WATER
     Indication: Parenteral nutrition
     Dosage: UNK
     Route: 042
     Dates: start: 20201003, end: 20201024
  12. SOYBEAN OIL [Concomitant]
     Active Substance: SOYBEAN OIL
     Indication: Parenteral nutrition
     Dosage: UNK
     Route: 042
     Dates: start: 20201007, end: 20201022
  13. DOPAMINE HYDROCHLORIDE [Concomitant]
     Active Substance: DOPAMINE HYDROCHLORIDE
     Indication: Hypotension
     Dosage: UNK
     Route: 042
     Dates: start: 20201002, end: 20201022
  14. VITAJECT [CYANOCOBALAMIN;PYRIDOXINE HYDROCHLORIDE;THIAMINE HYDROCHLORI [Concomitant]
     Indication: Parenteral nutrition
     Dosage: UNK
     Route: 042
     Dates: start: 20201003, end: 20201023
  15. ELEJECT [Concomitant]
     Indication: Parenteral nutrition
     Dosage: UNK
     Route: 042
     Dates: start: 20201003, end: 20201023
  16. CALCIUM GLUCONATE [Concomitant]
     Active Substance: CALCIUM GLUCONATE
     Indication: Hypocalcaemia
     Dosage: UNK
     Route: 042
     Dates: start: 20201002, end: 20201023
  17. FUROSEMIDE [Concomitant]
     Active Substance: FUROSEMIDE
     Indication: Prophylaxis
     Dosage: UNK
     Route: 042
     Dates: start: 20201007, end: 20201024
  18. MEROPENEM [Concomitant]
     Active Substance: MEROPENEM
     Indication: Intrauterine infection
     Dosage: UNK
     Route: 042
     Dates: start: 20201002, end: 20201013
  19. VANCOMYCIN HYDROCHLORIDE [Concomitant]
     Active Substance: VANCOMYCIN HYDROCHLORIDE
     Indication: Intrauterine infection
     Dosage: UNK
     Route: 042
     Dates: start: 20201002, end: 20201013
  20. FLUCONAZOLE [Concomitant]
     Active Substance: FLUCONAZOLE
     Indication: Intrauterine infection
     Dosage: UNK
     Route: 042
     Dates: start: 20201002, end: 20201024
  21. FLUTICASONE PROPIONATE [Concomitant]
     Active Substance: FLUTICASONE PROPIONATE
     Indication: Prophylaxis
     Dosage: UNK
     Dates: start: 20201010, end: 20201027
  22. LEVOTHYROXINE SODIUM [Concomitant]
     Active Substance: LEVOTHYROXINE SODIUM
     Indication: Hypothyroidism
     Dosage: UNK
     Route: 065
     Dates: start: 20201009, end: 20210109
  23. SODIUM CHLORIDE [Concomitant]
     Active Substance: SODIUM CHLORIDE
     Indication: Hyponatraemia
     Dosage: UNK
     Route: 042
     Dates: start: 20201012, end: 20201021
  24. BROMHEXINE HYDROCHLORIDE [Concomitant]
     Active Substance: BROMHEXINE HYDROCHLORIDE
     Indication: Prophylaxis
     Dosage: UNK
     Dates: start: 20201012, end: 20201022
  25. SODIUM CHLORIDE [Concomitant]
     Active Substance: SODIUM CHLORIDE
     Indication: Prophylaxis
     Dosage: UNK
     Dates: start: 20201012, end: 20201022

REACTIONS (3)
  - Bronchopulmonary dysplasia [Recovered/Resolved]
  - Infantile apnoea [Recovered/Resolved]
  - Hyponatraemia [Recovering/Resolving]

NARRATIVE: CASE EVENT DATE: 20201011
